FAERS Safety Report 24778277 (Version 1)
Quarter: 2024Q4

REPORT INFORMATION
  Report Type: Spontaneous
  Country: US (occurrence: None)
  Receive Date: 20241225
  Receipt Date: 20241225
  Transmission Date: 20250114
  Serious: Yes (Other)
  Sender: Public
  Company Number: None

PATIENT
  Age: 29 Year
  Sex: Male
  Weight: 96.75 kg

DRUGS (1)
  1. ROBITUSSIN 12 HOUR COUGH RELIEF [Suspect]
     Active Substance: DEXTROMETHORPHAN HYDROBROMIDE
     Indication: Cough
     Dosage: 1 CAPSULE EVERY 12 HOURS ORAL ?
     Route: 048
     Dates: start: 20241225, end: 20241225

REACTIONS (1)
  - Vomiting [None]

NARRATIVE: CASE EVENT DATE: 20241225
